FAERS Safety Report 9298076 (Version 1)
Quarter: 2013Q2

REPORT INFORMATION
  Report Type: Spontaneous
  Country: CH (occurrence: CH)
  Receive Date: 20130520
  Receipt Date: 20130520
  Transmission Date: 20140414
  Serious: Yes (Death)
  Sender: FDA-Public Use
  Company Number: CH-BAYER-2013-058527

PATIENT
  Age: 82 Year
  Sex: Female

DRUGS (11)
  1. ASPIRIN CARDIO [Suspect]
     Dosage: 100 MG, QD
     Route: 048
     Dates: end: 20130315
  2. ZANIDIP [Suspect]
     Dosage: 10 MG, QD
     Route: 048
     Dates: end: 20130315
  3. CO-DIOVAN [Suspect]
     Dosage: 1 DF, 25 MG/ 160 MG, QD
     Route: 048
     Dates: end: 20130315
  4. DIOVAN [Suspect]
     Dosage: 80 MG, QD
     Route: 048
     Dates: end: 20130315
  5. CONCOR [Suspect]
     Dosage: 10 MG, QD
     Route: 048
     Dates: end: 20130315
  6. ALDACTONE [SPIRONOLACTONE] [Suspect]
     Dosage: 25 MG, QD
     Route: 048
     Dates: end: 20130315
  7. ESIDREX [Suspect]
     Dosage: 25 MG, QOD
     Route: 048
     Dates: end: 20130315
  8. GLIMEPIRIDE [Concomitant]
     Dosage: 20 MG, QD
     Route: 048
     Dates: end: 20130315
  9. VICTOZA [Concomitant]
     Dosage: 0.6 MG, QD
     Route: 058
     Dates: end: 20130315
  10. IMOVANE [Concomitant]
     Dosage: 7.5 MG, QD
     Route: 048
     Dates: end: 20130315
  11. ELTROXIN [Concomitant]
     Dosage: 0.05 MG, QD
     Route: 048
     Dates: end: 20130315

REACTIONS (5)
  - Cerebral haemorrhage [Fatal]
  - Intracranial pressure increased [Fatal]
  - Fall [None]
  - Malaise [None]
  - Drug ineffective [None]
